FAERS Safety Report 17448424 (Version 1)
Quarter: 2020Q1

REPORT INFORMATION
  Report Type: Report from Study
  Country: None (occurrence: US)
  Receive Date: 20200223
  Receipt Date: 20200223
  Transmission Date: 20200409
  Serious: Yes (Other)
  Sender: FDA-Public Use
  Company Number: US-ABBVIE-20K-163-3276047-00

PATIENT
  Sex: Female

DRUGS (2)
  1. COMPAZINE [Concomitant]
     Active Substance: PROCHLORPERAZINE MALEATE
     Indication: PRODUCT USED FOR UNKNOWN INDICATION
  2. VENCLEXTA [Suspect]
     Active Substance: VENETOCLAX
     Indication: ACUTE MYELOID LEUKAEMIA (IN REMISSION)
     Route: 048
     Dates: start: 20200127

REACTIONS (6)
  - Emotional disorder [Unknown]
  - Fatigue [Unknown]
  - Transfusion [Unknown]
  - Asthenia [Unknown]
  - Decreased activity [Unknown]
  - Nausea [Unknown]

NARRATIVE: CASE EVENT DATE: 2020
